FAERS Safety Report 15741355 (Version 1)
Quarter: 2018Q4

REPORT INFORMATION
  Report Type: Report from Study
  Country: FR (occurrence: FR)
  Receive Date: 20181219
  Receipt Date: 20181219
  Transmission Date: 20190205
  Serious: Yes (Death, Other)
  Sender: FDA-Public Use
  Company Number: FR-JAZZ-2018-FR-006632

PATIENT
  Age: 50 Year
  Sex: Male

DRUGS (8)
  1. FUROSEMIDE. [Concomitant]
     Active Substance: FUROSEMIDE
     Indication: PROPHYLAXIS
     Dosage: 100 MG, QD
     Route: 042
     Dates: start: 20170327, end: 20170414
  2. MYCOPHENOLATE MOFETIL. [Concomitant]
     Active Substance: MYCOPHENOLATE MOFETIL
     Indication: PROPHYLAXIS AGAINST GRAFT VERSUS HOST DISEASE
     Dosage: 2000 MG, QD
     Route: 042
     Dates: start: 20170129, end: 20170510
  3. VFEND [Concomitant]
     Active Substance: VORICONAZOLE
     Indication: ANTIFUNGAL PROPHYLAXIS
     Dosage: 600 MG, QD
     Route: 042
     Dates: start: 20170307, end: 20170410
  4. AMOXICILLIN. [Concomitant]
     Active Substance: AMOXICILLIN
     Indication: INFECTION PROPHYLAXIS
     Dosage: 2 G, QD
     Route: 042
     Dates: start: 20170317, end: 20170410
  5. DEFITELIO [Suspect]
     Active Substance: DEFIBROTIDE SODIUM
     Indication: VENOOCCLUSIVE DISEASE
     Dosage: 25 MG/KG, QD
     Route: 042
     Dates: start: 20170323, end: 20170510
  6. HEPARIN [Concomitant]
     Active Substance: HEPARIN SODIUM
     Indication: ATRIAL FIBRILLATION
     Dosage: 70 MG, QD
     Route: 042
     Dates: start: 20170124, end: 20170424
  7. ACICLOVIR [Concomitant]
     Active Substance: ACYCLOVIR
     Indication: ANTIVIRAL PROPHYLAXIS
     Dosage: 750 MG, QD
     Route: 042
     Dates: start: 20170222, end: 20170510
  8. SOLU-MEDROL [Concomitant]
     Active Substance: METHYLPREDNISOLONE SODIUM SUCCINATE
     Indication: PROPHYLAXIS AGAINST GRAFT VERSUS HOST DISEASE
     Dosage: 120 MG, QD
     Route: 042
     Dates: start: 20170219, end: 20170511

REACTIONS (5)
  - Citrobacter sepsis [Fatal]
  - Infection [Fatal]
  - Venoocclusive liver disease [Not Recovered/Not Resolved]
  - Graft versus host disease in skin [Fatal]
  - Graft versus host disease in gastrointestinal tract [Fatal]

NARRATIVE: CASE EVENT DATE: 20170409
